FAERS Safety Report 23437466 (Version 4)
Quarter: 2025Q1

REPORT INFORMATION
  Report Type: Report from Study
  Country: CA (occurrence: CA)
  Receive Date: 20240124
  Receipt Date: 20250203
  Transmission Date: 20250409
  Serious: Yes (Hospitalization, Other)
  Sender: SANDOZ
  Company Number: CA-SANDOZ-SDZ2024CA006805

PATIENT
  Age: 70 Year
  Sex: Female

DRUGS (3)
  1. HYRIMOZ [Suspect]
     Active Substance: ADALIMUMAB-ADAZ
     Indication: Hidradenitis
     Dosage: 40 MG, QW
     Route: 058
     Dates: start: 20220228
  2. CLOTRIMAZOLE [Concomitant]
     Active Substance: CLOTRIMAZOLE
     Indication: Hidradenitis
     Route: 061
  3. MOMETASONE [Concomitant]
     Active Substance: MOMETASONE
     Indication: Hidradenitis
     Route: 061

REACTIONS (10)
  - Cardiac disorder [Unknown]
  - Respiratory failure [Not Recovered/Not Resolved]
  - Hypergammaglobulinaemia benign monoclonal [Unknown]
  - Respiratory tract infection viral [Not Recovered/Not Resolved]
  - Erythema [Recovered/Resolved]
  - Discharge [Unknown]
  - Neck mass [Unknown]
  - Skin lesion [Unknown]
  - Product dose omission issue [Unknown]
  - Inappropriate schedule of product administration [Unknown]

NARRATIVE: CASE EVENT DATE: 20250101
